FAERS Safety Report 7509501-0 (Version None)
Quarter: 2011Q2

REPORT INFORMATION
  Report Type: 
  Country: None (occurrence: None)
  Receive Date: 20110527
  Receipt Date: 20110516
  Transmission Date: 20111010
  Serious: Yes (Hospitalization)
  Sender: FDA-Public Use
  Company Number: US-CELGENEUS-163-21880-11031290

PATIENT
  Sex: Female

DRUGS (6)
  1. NORCO [Concomitant]
     Indication: PAIN
     Dosage: 10/500MG, 1-2
     Route: 048
     Dates: start: 20101210
  2. REVLIMID [Suspect]
     Dosage: 25 MILLIGRAM
     Route: 048
     Dates: start: 20110107
  3. DEXAMETHASONE [Concomitant]
     Dosage: 40 MILLIGRAM
     Route: 065
     Dates: start: 20110107
  4. DURAGESIC-100 [Concomitant]
     Indication: PAIN
     Dosage: 100 MICROGRAM
     Route: 065
     Dates: start: 20101206
  5. ATIVAN [Concomitant]
     Indication: ANXIETY
  6. ATIVAN [Concomitant]
     Indication: NAUSEA
     Dosage: 1 MILLIGRAM
     Route: 048
     Dates: start: 20110107

REACTIONS (1)
  - PULMONARY EMBOLISM [None]
